FAERS Safety Report 9820167 (Version 1)
Quarter: 2013Q4

REPORT INFORMATION
  Report Type: Spontaneous
  Country: US (occurrence: None)
  Receive Date: 20131021
  Receipt Date: 20131021
  Transmission Date: 20140711
  Serious: Yes (Hospitalization)
  Sender: FDA-Public Use
  Company Number: 2013SCPR005916

PATIENT
  Age: 58 Year
  Sex: Female

DRUGS (1)
  1. FENTANYL TRANSDERMAL SYSTEM [Suspect]
     Dosage: 1 PATCH, EVERY 72 HOURS, TRANSDERMAL
     Route: 062
     Dates: start: 20130401, end: 20130408

REACTIONS (6)
  - Drug withdrawal syndrome [None]
  - Restlessness [None]
  - Nausea [None]
  - Vomiting [None]
  - Product adhesion issue [None]
  - Product quality issue [None]
